FAERS Safety Report 9524604 (Version 1)
Quarter: 2013Q1

REPORT INFORMATION
  Report Type: Spontaneous
  Country: US (occurrence: None)
  Receive Date: 20130305
  Receipt Date: 20130305
  Transmission Date: 20140127
  Serious: Yes (Other)
  Sender: FDA-Public Use
  Company Number: 163-21880-12022358

PATIENT
  Age: 66 Year
  Sex: Female

DRUGS (3)
  1. REVLIMID (LENALIDOMIDE) (25 MILLIGRAM, CAPSULES) [Suspect]
     Indication: PLASMA CELL MYELOMA
     Route: 048
     Dates: start: 20111209, end: 201202
  2. VELCADE (BORTEZOMIB) [Concomitant]
  3. DEXAMETHASONE [Concomitant]

REACTIONS (11)
  - Haemoglobin decreased [None]
  - Anaemia [None]
  - Fatigue [None]
  - Drug ineffective [None]
  - Local swelling [None]
  - Contusion [None]
  - Influenza [None]
  - Rash [None]
  - Pruritus [None]
  - Hypokalaemia [None]
  - Asthenia [None]
